FAERS Safety Report 19011098 (Version 1)
Quarter: 2021Q1

REPORT INFORMATION
  Report Type: Spontaneous
  Country: FR (occurrence: FR)
  Receive Date: 20210316
  Receipt Date: 20210316
  Transmission Date: 20210420
  Serious: Yes (Other)
  Sender: FDA-Public Use
  Company Number: FR-TEVA-2021-FR-1889389

PATIENT
  Age: 76 Year
  Sex: Male
  Weight: 74 kg

DRUGS (7)
  1. MOVICOL [Concomitant]
     Active Substance: POLYETHYLENE GLYCOL 3350\POTASSIUM CHLORIDE\SODIUM BICARBONATE\SODIUM CHLORIDE
  2. VANCOMYCINE [Concomitant]
     Active Substance: VANCOMYCIN
  3. MERONEM [Concomitant]
     Active Substance: MEROPENEM
  4. LANSOYL [Concomitant]
     Active Substance: MINERAL OIL
  5. SKENAN [Concomitant]
     Active Substance: MORPHINE SULFATE
  6. VORICONAZOLE. [Suspect]
     Active Substance: VORICONAZOLE
     Indication: OSTEOMYELITIS
     Dosage: LOADING DOSE 450 MG 2X / DAY THEN 300MG 2X / DAY; UNIT DOSE: 600 MG
     Route: 042
     Dates: start: 20210205, end: 20210215
  7. LOVENOX [Concomitant]
     Active Substance: ENOXAPARIN SODIUM

REACTIONS (2)
  - Hepatocellular injury [Not Recovered/Not Resolved]
  - Cholestasis [Not Recovered/Not Resolved]

NARRATIVE: CASE EVENT DATE: 20210215
